FAERS Safety Report 7630690-1 (Version None)
Quarter: 2011Q3

REPORT INFORMATION
  Report Type: 
  Country: None (occurrence: None)
  Receive Date: 20110722
  Receipt Date: 20110712
  Transmission Date: 20111222
  Serious: Yes (Hospitalization, Other)
  Sender: FDA-Public Use
  Company Number: DE-GENENTECH-311563

PATIENT
  Age: 59 Year
  Sex: Female
  Weight: 75 kg

DRUGS (14)
  1. FENISTIL (DIMETINDENE) [Concomitant]
     Indication: PREMEDICATION
     Dosage: 4 MG, UNK
     Dates: start: 20101006
  2. TILIDIN [Concomitant]
     Indication: PRODUCT USED FOR UNKNOWN INDICATION
     Dosage: 100 MG, UNK
  3. PREDNISOLONE [Concomitant]
     Indication: PRODUCT USED FOR UNKNOWN INDICATION
     Dosage: 250 MG, UNK
     Dates: start: 20101020, end: 20101020
  4. METHYLPREDNISOLONE ACETATE [Suspect]
     Indication: RHEUMATOID ARTHRITIS
     Dosage: 125 MG, UNK
     Route: 042
     Dates: start: 20101006, end: 20101006
  5. NOVALGIN [Concomitant]
     Indication: PRODUCT USED FOR UNKNOWN INDICATION
     Dosage: 40 GTT, UNK
  6. RITUXIMAB [Suspect]
     Indication: RHEUMATOID ARTHRITIS
     Dosage: 1000 MG, UNK
     Route: 042
     Dates: start: 20101006
  7. METHYLPREDNISOLONE ACETATE [Suspect]
     Dosage: 500 MG, UNK
     Route: 042
     Dates: start: 20101022
  8. ADALIMUMAB [Suspect]
     Indication: RHEUMATOID ARTHRITIS
     Dosage: 1000 MG, UNK
     Route: 065
     Dates: start: 20090601, end: 20100907
  9. METHYLPREDNISOLONE ACETATE [Suspect]
     Dosage: 250 MG, UNK
     Route: 042
     Dates: start: 20101019, end: 20101019
  10. PANTOPRAZOLE [Concomitant]
     Indication: PRODUCT USED FOR UNKNOWN INDICATION
     Dosage: 20 MG, UNK
  11. ARCOXIA [Concomitant]
     Indication: PRODUCT USED FOR UNKNOWN INDICATION
     Dosage: 250 MG, UNK
     Dates: start: 20101019
  12. PREDNISOLONE [Concomitant]
     Dosage: 250 MG, UNK
     Dates: start: 20101028, end: 20101028
  13. ADALIMUMAB [Suspect]
     Dosage: UNK
     Route: 065
  14. ARCOXIA [Concomitant]
     Dosage: 250 MG, UNK
     Dates: start: 20101027

REACTIONS (6)
  - CHEST DISCOMFORT [None]
  - PLEURAL EFFUSION [None]
  - PAIN IN EXTREMITY [None]
  - DYSPNOEA EXERTIONAL [None]
  - NIGHTMARE [None]
  - FIBRIN D DIMER INCREASED [None]
